FAERS Safety Report 5911646-3 (Version None)
Quarter: 2008Q4

REPORT INFORMATION
  Report Type: 
  Country: None (occurrence: None)
  Receive Date: 20081003
  Receipt Date: 20080917
  Transmission Date: 20090506
  Serious: Yes (Hospitalization)
  Sender: FDA-Public Use
  Company Number: DSA_62312_2008

PATIENT
  Sex: Female

DRUGS (1)
  1. MIGRANAL [Suspect]
     Indication: DRUG USE FOR UNKNOWN INDICATION
     Dosage: (DF NASAL)
     Route: 045

REACTIONS (1)
  - PHARYNGEAL OEDEMA [None]
